FAERS Safety Report 15608495 (Version 3)
Quarter: 2019Q1

REPORT INFORMATION
  Report Type: Report from Study
  Country: CA (occurrence: CA)
  Receive Date: 20181112
  Receipt Date: 20190123
  Transmission Date: 20190417
  Serious: Yes (Other)
  Sender: FDA-Public Use
  Company Number: CA-OTSUKA-2018_032460

PATIENT
  Sex: Female

DRUGS (6)
  1. TOLVAPTAN [Suspect]
     Active Substance: TOLVAPTAN
     Indication: CONGENITAL CYSTIC KIDNEY DISEASE
     Dosage: 45 MG, QD (IN MORNING) FOR 3 MONTHS
     Route: 048
     Dates: start: 20180816
  2. BISOPROLOL FUMERATE [Concomitant]
     Active Substance: BISOPROLOL FUMARATE
     Indication: HYPERTENSION
     Dosage: 1 DF, QD (5 MG OD FOR 3 MONTHS)
     Route: 048
  3. ASA [Concomitant]
     Active Substance: ASPIRIN
     Indication: PRODUCT USED FOR UNKNOWN INDICATION
     Dosage: 1 DF, QD (FOR 1 MONTH)
     Route: 048
  4. ATACAND [Concomitant]
     Active Substance: CANDESARTAN CILEXETIL
     Indication: HYPERTENSION
     Dosage: 1 DF, QD (32 MG OD FOR 3 MONTHS)
     Route: 048
  5. TOLVAPTAN [Suspect]
     Active Substance: TOLVAPTAN
     Dosage: 15 MG, QD (8HRS LATER/IN EVENING) FOR 3 MONTHS
     Route: 048
     Dates: start: 20180816
  6. ATORVASTATIN [Concomitant]
     Active Substance: ATORVASTATIN
     Indication: HYPERCHOLESTEROLAEMIA
     Dosage: 1 DF, QD (20 MG OD FOR 1 MONTH)
     Route: 048

REACTIONS (11)
  - Lip dry [Not Recovered/Not Resolved]
  - Polydipsia [Not Recovered/Not Resolved]
  - Polyuria [Not Recovered/Not Resolved]
  - Decreased appetite [Recovering/Resolving]
  - Blood pressure abnormal [Not Recovered/Not Resolved]
  - Thirst [Not Recovered/Not Resolved]
  - Nocturia [Not Recovered/Not Resolved]
  - Weight decreased [Not Recovered/Not Resolved]
  - Night sweats [Not Recovered/Not Resolved]
  - Menstruation irregular [Not Recovered/Not Resolved]
  - Dry mouth [Unknown]
